FAERS Safety Report 4562493-9 (Version None)
Quarter: 2005Q1

REPORT INFORMATION
  Report Type: 
  Country: None (occurrence: None)
  Receive Date: 20050112
  Receipt Date: 20050112
  Transmission Date: 20050727
  Serious: Yes (Other)
  Sender: FDA-Public Use
  Company Number: None

PATIENT

DRUGS (2)
  1. ATIVAN [Suspect]
     Indication: ANXIETY
     Dosage: TID [MANY YEARS ON ATIVAN]
  2. ATIVAN [Suspect]
     Indication: PSYCHOTIC DISORDER
     Dosage: TID [MANY YEARS ON ATIVAN]

REACTIONS (3)
  - AGITATION [None]
  - PHARMACEUTICAL PRODUCT COMPLAINT [None]
  - PRURITUS [None]
